FAERS Safety Report 23201750 (Version 2)
Quarter: 2023Q4

REPORT INFORMATION
  Report Type: Spontaneous
  Country: FR (occurrence: FR)
  Receive Date: 20231120
  Receipt Date: 20231122
  Transmission Date: 20240109
  Serious: Yes (Hospitalization, Other)
  Sender: FDA-Public Use
  Company Number: None

PATIENT
  Age: 27 Year
  Sex: Female
  Weight: 62 kg

DRUGS (19)
  1. BUSULFAN [Suspect]
     Active Substance: BUSULFAN
     Indication: Allogenic stem cell transplantation
     Route: 065
  2. BUSULFAN [Suspect]
     Active Substance: BUSULFAN
     Indication: Bone marrow conditioning regimen
  3. FLUDARABINE PHOSPHATE [Suspect]
     Active Substance: FLUDARABINE PHOSPHATE
     Indication: Allogenic stem cell transplantation
     Route: 065
  4. FLUDARABINE PHOSPHATE [Suspect]
     Active Substance: FLUDARABINE PHOSPHATE
     Indication: Bone marrow conditioning regimen
  5. THIOTEPA [Suspect]
     Active Substance: THIOTEPA
     Indication: Allogenic stem cell transplantation
     Route: 065
  6. THIOTEPA [Suspect]
     Active Substance: THIOTEPA
     Indication: Bone marrow conditioning regimen
  7. EVEROLIMUS [Suspect]
     Active Substance: EVEROLIMUS
     Indication: Prophylaxis against graft versus host disease
     Route: 065
  8. CYCLOPHOSPHAMIDE [Suspect]
     Active Substance: CYCLOPHOSPHAMIDE
     Indication: Prophylaxis against graft versus host disease
     Route: 065
  9. CYTARABINE [Suspect]
     Active Substance: CYTARABINE
     Indication: Acute myeloid leukaemia
     Route: 065
  10. ETOPOSIDE [Suspect]
     Active Substance: ETOPOSIDE
     Indication: Acute myeloid leukaemia
     Route: 065
  11. HYDROXYUREA [Suspect]
     Active Substance: HYDROXYUREA
     Indication: Sickle cell disease
     Route: 065
  12. MITOXANTRONE [Suspect]
     Active Substance: MITOXANTRONE HYDROCHLORIDE
     Indication: Acute myeloid leukaemia
     Route: 065
  13. SIKLOS [Suspect]
     Active Substance: HYDROXYUREA
     Indication: Sickle cell anaemia with crisis
     Route: 048
  14. SIKLOS [Suspect]
     Active Substance: HYDROXYUREA
     Route: 048
     Dates: start: 20220521
  15. SIKLOS [Suspect]
     Active Substance: HYDROXYUREA
     Route: 048
     Dates: start: 201503
  16. THIOTEPA [Suspect]
     Active Substance: THIOTEPA
     Indication: Bone marrow conditioning regimen
  17. VYXEOS [Suspect]
     Active Substance: CYTARABINE\DAUNORUBICIN
     Indication: Product used for unknown indication
     Route: 065
  18. BUSULFAN [Suspect]
     Active Substance: BUSULFAN
  19. FLUDARABINE [Suspect]
     Active Substance: FLUDARABINE PHOSPHATE

REACTIONS (10)
  - Klebsiella sepsis [Unknown]
  - Bronchopulmonary aspergillosis [Unknown]
  - Hepatosplenic candidiasis [Unknown]
  - Septic shock [Unknown]
  - Pneumonia klebsiella [Unknown]
  - Myelodysplastic syndrome [Unknown]
  - Cellulitis [Unknown]
  - Acute myeloid leukaemia [Recovered/Resolved]
  - Pericarditis [Unknown]
  - Posterior reversible encephalopathy syndrome [Unknown]

NARRATIVE: CASE EVENT DATE: 20220501
